FAERS Safety Report 7409532-5 (Version None)
Quarter: 2011Q2

REPORT INFORMATION
  Report Type: 
  Country: None (occurrence: None)
  Receive Date: 20110407
  Receipt Date: 20110407
  Transmission Date: 20111010
  Serious: Yes (Other)
  Sender: FDA-Public Use
  Company Number: None

PATIENT
  Age: 55 Year
  Sex: Female
  Weight: 65.7716 kg

DRUGS (1)
  1. ABILIFY [Suspect]
     Indication: BIPOLAR DISORDER
     Dosage: 10MG QD PO
     Route: 048
     Dates: start: 20110308, end: 20110405

REACTIONS (2)
  - RESTLESS LEGS SYNDROME [None]
  - DRUG WITHDRAWAL SYNDROME [None]
